FAERS Safety Report 12172153 (Version 1)
Quarter: 2016Q1

REPORT INFORMATION
  Report Type: Spontaneous
  Country: CA (occurrence: CA)
  Receive Date: 20160311
  Receipt Date: 20160311
  Transmission Date: 20160526
  Serious: Yes (Hospitalization)
  Sender: FDA-Public Use
  Company Number: CA-ACTELION-A-NJ2016-132607

PATIENT
  Age: 74 Year
  Sex: Female

DRUGS (7)
  1. FUROSEMIDE. [Concomitant]
     Active Substance: FUROSEMIDE
  2. OPSUMIT [Suspect]
     Active Substance: MACITENTAN
     Indication: PULMONARY HYPERTENSION
     Dosage: 10 MG, QD
     Route: 048
  3. ELIQUIS [Concomitant]
     Active Substance: APIXABAN
  4. POTASSIUM [Concomitant]
     Active Substance: POTASSIUM
  5. RABEPRAZOLE [Concomitant]
     Active Substance: RABEPRAZOLE
  6. TOLOXIN [Concomitant]
     Active Substance: DIGOXIN
  7. VITALUX [Concomitant]
     Active Substance: MINERALS\VITAMINS

REACTIONS (1)
  - Pneumonia [Unknown]
